FAERS Safety Report 9914356 (Version 1)
Quarter: 2014Q1

REPORT INFORMATION
  Report Type: Spontaneous
  Country: US (occurrence: US)
  Receive Date: 20140220
  Receipt Date: 20140220
  Transmission Date: 20141002
  Serious: Yes (Other)
  Sender: FDA-Public Use
  Company Number: US-ELI_LILLY_AND_COMPANY-US201402003842

PATIENT
  Age: 23 Year
  Sex: Male
  Weight: 47.62 kg

DRUGS (5)
  1. ZYPREXA ZYDIS [Suspect]
     Indication: PSYCHOTIC DISORDER
     Dosage: 2.5 MG, UNKNOWN
     Route: 065
     Dates: start: 2006
  2. ZYPREXA ZYDIS [Suspect]
     Dosage: 1.25 MG, UNKNOWN
     Route: 065
  3. ZYPREXA ZYDIS [Suspect]
     Dosage: 1 MG, UNKNOWN
     Route: 065
  4. DHA [Concomitant]
     Indication: PRODUCT USED FOR UNKNOWN INDICATION
     Dosage: 1 DF, UNKNOWN
     Route: 065
  5. VITAMIN D                          /00107901/ [Concomitant]
     Indication: PRODUCT USED FOR UNKNOWN INDICATION
     Dosage: 2 GTT, UNKNOWN
     Route: 065

REACTIONS (24)
  - Neurological decompensation [Unknown]
  - Underweight [Unknown]
  - Dyskinesia [Unknown]
  - Grimacing [Unknown]
  - Migraine [Unknown]
  - Peripheral coldness [Unknown]
  - Gastrooesophageal reflux disease [Unknown]
  - Platelet count decreased [Unknown]
  - Mastication disorder [Unknown]
  - Speech disorder [Unknown]
  - Memory impairment [Unknown]
  - Abnormal behaviour [Not Recovered/Not Resolved]
  - Insomnia [Unknown]
  - Agitation [Unknown]
  - Restlessness [Unknown]
  - Vitamin D decreased [Unknown]
  - Faecal incontinence [Unknown]
  - Obsessive-compulsive disorder [Unknown]
  - Dysphagia [Unknown]
  - Vasodilatation [Unknown]
  - Tremor [Unknown]
  - Urinary incontinence [Unknown]
  - Psychomotor skills impaired [Unknown]
  - Wrong technique in drug usage process [Unknown]
